FAERS Safety Report 15419015 (Version 5)
Quarter: 2018Q4

REPORT INFORMATION
  Report Type: Spontaneous
  Country: US (occurrence: US)
  Receive Date: 20180924
  Receipt Date: 20181126
  Transmission Date: 20190204
  Serious: Yes (Hospitalization, Other)
  Sender: FDA-Public Use
  Company Number: US-UNITED THERAPEUTICS-UNT-2018-014555

PATIENT
  Age: 18 Year
  Sex: Female
  Weight: 48.6 kg

DRUGS (7)
  1. REMODULIN [Suspect]
     Active Substance: TREPROSTINIL
     Indication: PULMONARY HYPERTENSION
     Dosage: 0.071 ?G/KG, CONTINUING
     Route: 041
     Dates: start: 20180417
  2. LETAIRIS [Suspect]
     Active Substance: AMBRISENTAN
     Indication: PULMONARY HYPERTENSION
     Dosage: 10 MG, QD
     Route: 048
     Dates: start: 20130530
  3. LETAIRIS [Suspect]
     Active Substance: AMBRISENTAN
     Indication: TAKAYASU^S ARTERITIS
     Dosage: UNK
     Route: 065
     Dates: start: 20170314
  4. CYCLOPHOSPHAMIDE. [Suspect]
     Active Substance: CYCLOPHOSPHAMIDE
     Indication: TAKAYASU^S ARTERITIS
     Route: 065
  5. LETAIRIS [Suspect]
     Active Substance: AMBRISENTAN
     Indication: RESTRICTIVE PULMONARY DISEASE
  6. REMODULIN [Suspect]
     Active Substance: TREPROSTINIL
     Indication: PULMONARY ARTERIAL HYPERTENSION
     Dosage: 0.0801 ?G/KG, CONTINUING
     Route: 041
     Dates: start: 20180208
  7. ADCIRCA [Concomitant]
     Active Substance: TADALAFIL
     Indication: PRODUCT USED FOR UNKNOWN INDICATION
     Dosage: 40 MG, UNK
     Route: 065

REACTIONS (1)
  - Cystitis haemorrhagic [Recovered/Resolved]

NARRATIVE: CASE EVENT DATE: 20180829
